FAERS Safety Report 6866473-X (Version None)
Quarter: 2010Q3

REPORT INFORMATION
  Report Type: 
  Country: None (occurrence: None)
  Receive Date: 20100722
  Receipt Date: 20100719
  Transmission Date: 20110219
  Serious: Yes (Hospitalization)
  Sender: FDA-Public Use
  Company Number: DE-WYE-G06254810

PATIENT
  Sex: Female

DRUGS (8)
  1. TORISEL [Suspect]
     Indication: MANTLE CELL LYMPHOMA STAGE IV
     Route: 042
     Dates: start: 20100506, end: 20100506
  2. TORISEL [Suspect]
     Route: 042
     Dates: start: 20100512, end: 20100512
  3. DIPIPERON [Concomitant]
  4. ALLOPURINOL [Concomitant]
  5. ONDANSETRON [Concomitant]
     Indication: PREMEDICATION
     Dosage: 8 MG PRIOR TO TORISEL ADMINISTRATION
     Dates: start: 20100508
  6. SPIRIVA [Concomitant]
  7. DEXAMETHASONE [Concomitant]
     Indication: PREMEDICATION
     Dosage: 8 MG PRIOR TO TORISEL ADMINISTRATION
     Dates: start: 20100508
  8. AMPHOTERICIN B [Concomitant]

REACTIONS (2)
  - CONDITION AGGRAVATED [None]
  - GENERAL PHYSICAL HEALTH DETERIORATION [None]
